FAERS Safety Report 4953204-3 (Version None)
Quarter: 2006Q1

REPORT INFORMATION
  Report Type: 
  Country: None (occurrence: None)
  Receive Date: 20060324
  Receipt Date: 20051025
  Transmission Date: 20060701
  Serious: Yes (Hospitalization, Disabling)
  Sender: FDA-Public Use
  Company Number: US-MERCK-0510USA09213

PATIENT
  Age: 69 Year
  Sex: Female
  Weight: 90 kg

DRUGS (20)
  1. VIOXX [Suspect]
     Indication: PAIN
     Route: 048
     Dates: start: 20010618, end: 20030311
  2. VIOXX [Suspect]
     Indication: ARTHRITIS
     Route: 048
     Dates: start: 20010618, end: 20030311
  3. TYLENOL [Concomitant]
     Route: 065
  4. COUMADIN [Concomitant]
     Route: 048
  5. PREMARIN [Concomitant]
     Route: 048
  6. PROTONIX [Concomitant]
     Route: 048
  7. VERAPAMIL [Concomitant]
     Route: 048
  8. CLARITIN [Concomitant]
     Route: 048
  9. INDAPAMIDE [Concomitant]
     Route: 048
  10. HEMOCYTE PLUS [Concomitant]
     Route: 048
  11. OXYBUTYNIN CHLORIDE [Concomitant]
     Route: 048
  12. SYNTHROID [Concomitant]
     Route: 048
  13. LORAZEPAM [Concomitant]
     Route: 048
  14. AMITRIPTYLINE HYDROCHLORIDE [Concomitant]
     Route: 048
  15. ASPIRIN [Concomitant]
     Route: 048
  16. ALTACE [Concomitant]
     Route: 048
  17. ALLEGRA [Concomitant]
     Route: 048
  18. LOZOL [Concomitant]
     Route: 048
  19. AVAPRO [Concomitant]
     Route: 048
  20. NITRO-DUR [Concomitant]
     Route: 061

REACTIONS (22)
  - ANAEMIA [None]
  - ATRIAL FIBRILLATION [None]
  - CARDIAC DISORDER [None]
  - CARDIAC FAILURE CONGESTIVE [None]
  - CARDIOMYOPATHY [None]
  - CHEST DISCOMFORT [None]
  - CHEST PAIN [None]
  - CONDUCTION DISORDER [None]
  - DYSPNOEA [None]
  - GASTROINTESTINAL HAEMORRHAGE [None]
  - HAEMATOCHEZIA [None]
  - HEADACHE [None]
  - HYPERTENSION [None]
  - HYPOKALAEMIA [None]
  - HYPONATRAEMIA [None]
  - INTRACARDIAC THROMBUS [None]
  - MYOCARDIAL INFARCTION [None]
  - PALPITATIONS [None]
  - PNEUMONIA [None]
  - PYELONEPHRITIS [None]
  - SICK SINUS SYNDROME [None]
  - URINARY TRACT INFECTION [None]
